FAERS Safety Report 21601032 (Version 3)
Quarter: 2023Q1

REPORT INFORMATION
  Report Type: Report from Study
  Country: US (occurrence: US)
  Receive Date: 20221116
  Receipt Date: 20230210
  Transmission Date: 20230418
  Serious: Yes (Hospitalization, Other)
  Sender: FDA-Public Use
  Company Number: US-UCBSA-2022064932

PATIENT
  Age: 76 Year
  Sex: Female
  Weight: 73.9 kg

DRUGS (16)
  1. BRIVARACETAM [Suspect]
     Active Substance: BRIVARACETAM
     Indication: Seizure
     Dosage: 100MG 1 TABLET IN THE MORNING 1/2 TABLET MIDDAY
  2. BRIVARACETAM [Suspect]
     Active Substance: BRIVARACETAM
     Dosage: 100MG IN THE AM, 50MG PM AND 100MG EVENING
     Dates: start: 20220330, end: 20221101
  3. BRIVARACETAM [Suspect]
     Active Substance: BRIVARACETAM
     Dosage: 1 TABLET IN AM , 1/2 TABLET IN MIDDAY AND 1 TABLET IN PM,
     Dates: start: 20220329, end: 20221103
  4. BRIVARACETAM [Suspect]
     Active Substance: BRIVARACETAM
     Dosage: TAKE 1 TABLET BY MOUTH EVERY MORNING ONE-HALF TABLET AT MIDDAY AND 1 TABLET EVERY EVENING
     Route: 048
     Dates: start: 20220328, end: 20220928
  5. BRIVARACETAM [Suspect]
     Active Substance: BRIVARACETAM
     Dosage: 100 MILLIGRAM, 2X/DAY (BID)
     Dates: start: 20220928
  6. ALLEGRA ALLERGY [Concomitant]
     Active Substance: FEXOFENADINE HYDROCHLORIDE
     Indication: Product used for unknown indication
     Dosage: 60 MILLIGRAM, ONCE DAILY (QD)
     Route: 048
     Dates: start: 20220914, end: 20230113
  7. LYRICA [Concomitant]
     Active Substance: PREGABALIN
     Indication: Product used for unknown indication
     Dosage: 150 MILLIGRAM, 3X/DAY (TID)
     Route: 048
     Dates: start: 20220928, end: 20221028
  8. TRILEPTAL [Concomitant]
     Active Substance: OXCARBAZEPINE
     Indication: Seizure
     Dosage: TAKE 2 TABLETS BY MOUTH IN THE MORNING, 1 TABLET BY MOUTH AT 3:00 PM AND 4 TABLETS BY MOUTH AT BEDTI
     Route: 048
     Dates: start: 20220928, end: 20220928
  9. DILANTIN [Concomitant]
     Active Substance: PHENYTOIN
     Indication: Seizure
     Dosage: UNK
  10. DEPAKOTE [Concomitant]
     Active Substance: DIVALPROEX SODIUM
     Indication: Seizure
     Dosage: UNK
  11. PHENOBARBITAL [Concomitant]
     Active Substance: PHENOBARBITAL
     Indication: Seizure
     Dosage: UNK
  12. LAMICTAL [Concomitant]
     Active Substance: LAMOTRIGINE
     Indication: Seizure
     Dosage: UNK
  13. TOPAMAX [Concomitant]
     Active Substance: TOPIRAMATE
     Indication: Seizure
     Dosage: UNK
  14. LORAZEPAM [Concomitant]
     Active Substance: LORAZEPAM
     Indication: Seizure
     Dosage: UNK
  15. TESSALON [Concomitant]
     Active Substance: BENZONATATE
     Indication: Cough
     Dosage: 200 MILLIGRAM, 3X/DAY (TID)
     Route: 048
     Dates: start: 20220914, end: 20221014
  16. FLEXERIL [Concomitant]
     Active Substance: CYCLOBENZAPRINE HYDROCHLORIDE
     Indication: Muscle spasms
     Dosage: 10 MILLIGRAM, 3X/DAY (TID)
     Route: 048
     Dates: start: 20220923, end: 20221023

REACTIONS (16)
  - Seizure [Recovering/Resolving]
  - Pneumonia [Not Recovered/Not Resolved]
  - Hypotension [Not Recovered/Not Resolved]
  - Cystitis [Not Recovered/Not Resolved]
  - Rib fracture [Not Recovered/Not Resolved]
  - Depression [Not Recovered/Not Resolved]
  - Anxiety [Not Recovered/Not Resolved]
  - Aura [Recovered/Resolved]
  - Restless legs syndrome [Recovering/Resolving]
  - Pain [Unknown]
  - Poor quality sleep [Unknown]
  - Snoring [Unknown]
  - Dry mouth [Unknown]
  - Fatigue [Unknown]
  - Product use issue [Unknown]
  - Multiple-drug resistance [Unknown]

NARRATIVE: CASE EVENT DATE: 20230113
